FAERS Safety Report 4285569-2 (Version None)
Quarter: 2004Q1

REPORT INFORMATION
  Report Type: 
  Country: None (occurrence: None)
  Receive Date: 20040203
  Receipt Date: 20040123
  Transmission Date: 20041129
  Serious: Yes (Death)
  Sender: FDA-Public Use
  Company Number: DEU-2004-0000726

PATIENT
  Age: 22 Day
  Sex: Male

DRUGS (2)
  1. BETAISODONA(POVIDONE-IODINE) UNKNOWN [Suspect]
     Indication: PLEURAL EFFUSION
     Dosage: INTRAPLEURAL
     Route: 034
  2. FENTANYL [Concomitant]

REACTIONS (10)
  - CONDITION AGGRAVATED [None]
  - HYDROPS FOETALIS [None]
  - HYPOTENSION [None]
  - LYMPHATIC DISORDER [None]
  - MATERNAL DRUGS AFFECTING FOETUS [None]
  - OLIGURIA [None]
  - PLEURAL EFFUSION [None]
  - RENAL FAILURE CHRONIC [None]
  - RENAL VEIN THROMBOSIS [None]
  - SYSTEMIC CANDIDA [None]
